FAERS Safety Report 10024033 (Version 2)
Quarter: 2014Q1

REPORT INFORMATION
  Report Type: Spontaneous
  Country: US (occurrence: US)
  Receive Date: 20140320
  Receipt Date: 20140320
  Transmission Date: 20141002
  Serious: No
  Sender: FDA-Public Use
  Company Number: US-MYLANLABS-2013S1027843

PATIENT
  Age: 44 Year
  Sex: Female
  Weight: 81.65 kg

DRUGS (5)
  1. BUSPIRONE HYDROCHLORIDE TABLETS, USP [Suspect]
     Indication: ANXIETY
     Route: 048
  2. ATORVASTATIN CALCIUM TABLETS [Suspect]
     Indication: BLOOD CHOLESTEROL INCREASED
     Route: 048
  3. LANSOPRAZOLE DELAYED-RELEASE CAPSULES, USP [Suspect]
     Indication: GASTROOESOPHAGEAL REFLUX DISEASE
     Route: 048
     Dates: start: 2013
  4. CYMBALTA [Concomitant]
     Indication: PAIN IN EXTREMITY
     Route: 048
  5. METFORMIN [Concomitant]
     Indication: POLYCYSTIC OVARIES
     Route: 048

REACTIONS (1)
  - Alopecia [Not Recovered/Not Resolved]
